FAERS Safety Report 8021367-1 (Version None)
Quarter: 2012Q1

REPORT INFORMATION
  Report Type: 
  Country: None (occurrence: None)
  Receive Date: 20120104
  Receipt Date: 20120102
  Transmission Date: 20120608
  Serious: Yes (Other)
  Sender: FDA-Public Use
  Company Number: CO-PFIZER INC-2011313300

PATIENT
  Age: 71 Year
  Sex: Female

DRUGS (2)
  1. NEXIUM [Concomitant]
     Indication: REFLUX GASTRITIS
     Dosage: 40 MG, UNK
  2. NORVASC [Suspect]
     Indication: HYPERTENSION
     Dosage: 10 MG, 1X/DAY
     Route: 048
     Dates: start: 19990101

REACTIONS (2)
  - BLINDNESS UNILATERAL [None]
  - DIABETES MELLITUS [None]
